FAERS Safety Report 6508947-7 (Version None)
Quarter: 2009Q4

REPORT INFORMATION
  Report Type: 
  Country: None (occurrence: None)
  Receive Date: 20091221
  Receipt Date: 20091019
  Transmission Date: 20100525
  Serious: Yes (Hospitalization)
  Sender: FDA-Public Use
  Company Number: US-ASTRAZENECA-2009SE14802

PATIENT
  Age: 50 Year
  Sex: Female
  Weight: 117 kg

DRUGS (8)
  1. CRESTOR [Suspect]
     Indication: BLOOD CHOLESTEROL INCREASED
     Route: 048
     Dates: start: 20090630, end: 20090811
  2. CRESTOR [Suspect]
     Route: 048
     Dates: start: 20090915
  3. NEXIUM [Concomitant]
     Route: 048
  4. HYDROCHLOROTHIAZIDE [Concomitant]
  5. COREG [Concomitant]
  6. BENICAR [Concomitant]
  7. PREMARIN [Concomitant]
  8. SANCTURA [Concomitant]

REACTIONS (1)
  - PANCREATITIS [None]
